FAERS Safety Report 8452607-2 (Version None)
Quarter: 2012Q2

REPORT INFORMATION
  Report Type: 
  Country: None (occurrence: None)
  Receive Date: 20120620
  Receipt Date: 20120501
  Transmission Date: 20120825
  Serious: No
  Sender: FDA-Public Use
  Company Number: US-VERTEX PHARMACEUTICALS INC.-AE-2012-005671

PATIENT
  Sex: Male
  Weight: 80.358 kg

DRUGS (14)
  1. COMBIVENT [Concomitant]
  2. DIOVAN HCT [Concomitant]
  3. LISINOPRIL [Concomitant]
  4. RIBAVIRIN [Concomitant]
     Dates: start: 20120224
  5. CITALOPRAM HYDROBROMIDE [Concomitant]
  6. RIBAVIRIN [Concomitant]
     Indication: HEPATITIS C
     Dates: start: 20120128
  7. MELOXICAM [Concomitant]
  8. VALLIUM [Concomitant]
  9. INCIVEK [Suspect]
     Indication: HEPATITIS C
     Route: 048
     Dates: start: 20120128, end: 20120421
  10. PEGASYS [Concomitant]
     Indication: HEPATITIS C
     Dates: start: 20120128
  11. RIBAVIRIN [Concomitant]
     Dates: start: 20120323
  12. OXYCODONE HCL [Concomitant]
  13. TRAZODONE HCL [Concomitant]
  14. ZOLPIDEM [Concomitant]

REACTIONS (1)
  - ANAEMIA [None]
